FAERS Safety Report 22253700 (Version 3)
Quarter: 2023Q2

REPORT INFORMATION
  Report Type: Spontaneous
  Country: JP (occurrence: JP)
  Receive Date: 20230426
  Receipt Date: 20230502
  Transmission Date: 20230721
  Serious: Yes (Other)
  Sender: FDA-Public Use
  Company Number: JP-UCBJ-CD202304559UCBPHAPROD

PATIENT
  Age: 6 Decade
  Sex: Male

DRUGS (1)
  1. VIMPAT [Suspect]
     Active Substance: LACOSAMIDE
     Indication: Epilepsy
     Dosage: 250 MILLIGRAM, ONCE DAILY (QD)(100 MG IN THE MORNING, 50 MG AFTER DIALYSIS, AND 100 MG AFTER DINNER)
     Route: 048

REACTIONS (2)
  - Epilepsy [Recovered/Resolved]
  - Incorrect dose administered [Unknown]
